FAERS Safety Report 6966739-9 (Version None)
Quarter: 2010Q3

REPORT INFORMATION
  Report Type: 
  Country: None (occurrence: None)
  Receive Date: 20100906
  Receipt Date: 20100831
  Transmission Date: 20110219
  Serious: Yes (Other)
  Sender: FDA-Public Use
  Company Number: FR-BRISTOL-MYERS SQUIBB COMPANY-15265127

PATIENT
  Age: 66 Year
  Sex: Male

DRUGS (3)
  1. REYATAZ [Suspect]
     Indication: HIV INFECTION
     Route: 048
     Dates: start: 20050419, end: 20100202
  2. NORVIR [Concomitant]
     Route: 048
     Dates: start: 20050419
  3. TRUVADA [Concomitant]
     Indication: HIV INFECTION
     Route: 048
     Dates: start: 20060110

REACTIONS (4)
  - CHOLANGITIS [None]
  - CHOLELITHIASIS [None]
  - CHOLESTASIS [None]
  - PANCREATITIS [None]
